FAERS Safety Report 4591112-0 (Version None)
Quarter: 2005Q1

REPORT INFORMATION
  Report Type: 
  Country: None (occurrence: None)
  Receive Date: 20050223
  Receipt Date: 20050223
  Transmission Date: 20050727
  Serious: Yes (Other)
  Sender: FDA-Public Use
  Company Number: None

PATIENT
  Age: 18 Year
  Sex: Female
  Weight: 72.5755 kg

DRUGS (1)
  1. ZOLOFT [Suspect]
     Indication: DEPRESSION
     Dosage: 100MG DAILY ORAL
     Route: 048

REACTIONS (7)
  - AGGRESSION [None]
  - AGITATION [None]
  - ALCOHOL USE [None]
  - MOOD ALTERED [None]
  - OVERDOSE [None]
  - SUICIDE ATTEMPT [None]
  - VERBAL ABUSE [None]
